FAERS Safety Report 4708632-8 (Version None)
Quarter: 2005Q3

REPORT INFORMATION
  Report Type: 
  Country: None (occurrence: None)
  Receive Date: 20050707
  Receipt Date: 20050627
  Transmission Date: 20060218
  Serious: Yes (Congenital Anomaly, Other)
  Sender: FDA-Public Use
  Company Number: 200515942GDDC

PATIENT
  Sex: Male

DRUGS (4)
  1. CLOMID [Suspect]
     Indication: POLYCYSTIC OVARIES
     Route: 064
     Dates: start: 20040201, end: 20040401
  2. GLUCOPHAGE [Suspect]
     Indication: POLYCYSTIC OVARIES
     Route: 064
     Dates: start: 20040201
  3. CYCLOGEST [Suspect]
     Indication: PREGNANCY
     Dosage: DOSE: UNK
     Dates: start: 20040601
  4. CYCLOGEST [Suspect]
     Indication: PROPHYLAXIS
     Dosage: DOSE: UNK
     Dates: start: 20040601

REACTIONS (8)
  - CONGENITAL ANOMALY [None]
  - CONGENITAL BOWING OF LONG BONES [None]
  - CONGENITAL FOOT MALFORMATION [None]
  - LIMB REDUCTION DEFECT [None]
  - LOWER LIMB DEFORMITY [None]
  - NEONATAL DISORDER [None]
  - PREGNANCY [None]
  - SYNDACTYLY [None]
